FAERS Safety Report 24190654 (Version 1)
Quarter: 2024Q3

REPORT INFORMATION
  Report Type: Spontaneous
  Country: US (occurrence: None)
  Receive Date: 20240808
  Receipt Date: 20240808
  Transmission Date: 20241016
  Serious: No
  Sender: Public
  Company Number: None

PATIENT
  Age: 58 Year
  Sex: Female
  Weight: 69.75 kg

DRUGS (11)
  1. DILAUDID [Suspect]
     Active Substance: HYDROMORPHONE HYDROCHLORIDE
     Indication: Pain
  2. PHENTERMINE [Concomitant]
     Active Substance: PHENTERMINE
  3. tyrosint [Concomitant]
  4. VASCEPA [Concomitant]
     Active Substance: ICOSAPENT ETHYL
  5. epinephrine PRN [Concomitant]
  6. valacyclovir prn [Concomitant]
  7. RIZATRIPTAN [Concomitant]
     Active Substance: RIZATRIPTAN
  8. BELSOMRA [Concomitant]
     Active Substance: SUVOREXANT
  9. DRISDOL [Concomitant]
     Active Substance: ERGOCALCIFEROL
  10. DIETARY SUPPLEMENT [Concomitant]
     Active Substance: DIETARY SUPPLEMENT
  11. albuterol PRN [Concomitant]

REACTIONS (7)
  - Mast cell activation syndrome [None]
  - Heart rate increased [None]
  - Burning sensation [None]
  - Migraine [None]
  - Dyspnoea [None]
  - Constipation [None]
  - Haematochezia [None]

NARRATIVE: CASE EVENT DATE: 20240708
